FAERS Safety Report 8905384 (Version 1)
Quarter: 2012Q4

REPORT INFORMATION
  Report Type: Report from Study
  Country: RU (occurrence: RU)
  Receive Date: 20121111
  Receipt Date: 20121111
  Transmission Date: 20130627
  Serious: Yes (Death, Hospitalization)
  Sender: FDA-Public Use
  Company Number: PHHY2012RU102807

PATIENT
  Age: 62 Year
  Sex: Female

DRUGS (2)
  1. TASIGNA [Suspect]
     Indication: CHRONIC MYELOID LEUKAEMIA
     Dosage: 800 mg, daily
     Route: 048
     Dates: start: 20120114, end: 20120626
  2. NO TREATMENT RECEIVED [Suspect]

REACTIONS (3)
  - Acute myocardial infarction [Fatal]
  - Chest pain [Fatal]
  - Dyspnoea [Fatal]
